FAERS Safety Report 22210230 (Version 1)
Quarter: 2023Q2

REPORT INFORMATION
  Report Type: Spontaneous
  Country: GB (occurrence: GB)
  Receive Date: 20230414
  Receipt Date: 20230414
  Transmission Date: 20230721
  Serious: Yes (Other)
  Sender: FDA-Public Use
  Company Number: GB-UCBSA-2023018968

PATIENT

DRUGS (2)
  1. KEPPRA [Suspect]
     Active Substance: LEVETIRACETAM
     Indication: Product used for unknown indication
     Dosage: 3,000 MG DAILY
  2. KEPPRA [Suspect]
     Active Substance: LEVETIRACETAM
     Dosage: MORNING DOSE WAS INCREASED TO 1,750MG WITH THE EVENING DOSE REMAINING AS 1,500MG

REACTIONS (2)
  - Seizure [Unknown]
  - Drug level decreased [Unknown]

NARRATIVE: CASE EVENT DATE: 20230126
